FAERS Safety Report 6035299-1 (Version None)
Quarter: 2009Q1

REPORT INFORMATION
  Report Type: 
  Country: None (occurrence: None)
  Receive Date: 20090109
  Receipt Date: 20090104
  Transmission Date: 20090719
  Serious: Yes (Hospitalization)
  Sender: FDA-Public Use
  Company Number: CHPA2009US00446

PATIENT
  Age: 4 Year
  Sex: Female
  Weight: 17.7 kg

DRUGS (1)
  1. TRIAMINIC THIN STRIPS UNKNOWN (NCH) (UNKNOWN) DISPERSIBLE TABLET [Suspect]
     Indication: NASOPHARYNGITIS
     Dosage: 1 DF, QD, ORAL
     Route: 048
     Dates: start: 20081221, end: 20081221

REACTIONS (1)
  - CONVULSION [None]
